FAERS Safety Report 7969015-0 (Version None)
Quarter: 2011Q4

REPORT INFORMATION
  Report Type: 
  Country: None (occurrence: None)
  Receive Date: 20111209
  Receipt Date: 20111206
  Transmission Date: 20120403
  Serious: No
  Sender: FDA-Public Use
  Company Number: US-BAYER-2011-118286

PATIENT

DRUGS (3)
  1. MOTRIN [Concomitant]
  2. ALEVE (CAPLET) [Suspect]
  3. ANBESOL [BENZOCAINE] [Concomitant]

REACTIONS (1)
  - TOOTHACHE [None]
